FAERS Safety Report 5314608-2 (Version None)
Quarter: 2007Q2

REPORT INFORMATION
  Report Type: 
  Country: None (occurrence: None)
  Receive Date: 20070427
  Receipt Date: 20070413
  Transmission Date: 20071010
  Serious: Yes (Life-Threatening)
  Sender: FDA-Public Use
  Company Number: SPV1-2007-01832

PATIENT
  Age: 34 Year
  Sex: Female

DRUGS (6)
  1. PENTASA [Suspect]
     Indication: COLITIS ULCERATIVE
     Dosage: SEE IMAGE
     Route: 048
     Dates: start: 20070226, end: 20070314
  2. PENTASA [Suspect]
     Indication: COLITIS ULCERATIVE
     Dosage: SEE IMAGE
     Route: 048
     Dates: start: 20070315, end: 20070317
  3. PENTASA [Suspect]
     Indication: COLITIS ULCERATIVE
     Dosage: SEE IMAGE
     Route: 048
     Dates: start: 20070318, end: 20070318
  4. PENTASA [Suspect]
     Indication: COLITIS ULCERATIVE
     Dosage: SEE IMAGE
     Route: 048
     Dates: start: 20070319, end: 20070319
  5. MEROPEN [Suspect]
     Indication: SEPSIS
     Dosage: 1G DAILY, INTRAVENOUS
     Route: 042
     Dates: start: 20070315, end: 20070319
  6. ROPION (FLURBIPROFEN AXETIL) [Suspect]
     Indication: PYREXIA
     Dosage: 100 MG, DAILY; INTRAVENOUS
     Route: 042
     Dates: start: 20070312, end: 20070316

REACTIONS (10)
  - BLOOD BETA-D-GLUCAN INCREASED [None]
  - CD4 LYMPHOCYTES DECREASED [None]
  - CD8 LYMPHOCYTES DECREASED [None]
  - COLITIS ULCERATIVE [None]
  - CONDITION AGGRAVATED [None]
  - DECREASED IMMUNE RESPONSIVENESS [None]
  - DEHYDRATION [None]
  - GASTROINTESTINAL INFECTION [None]
  - RENAL IMPAIRMENT [None]
  - SEPSIS [None]
